FAERS Safety Report 9917983 (Version 2)
Quarter: 2014Q1

REPORT INFORMATION
  Report Type: Report from Study
  Country: KR (occurrence: KR)
  Receive Date: 20140222
  Receipt Date: 20140222
  Transmission Date: 20141002
  Serious: Yes (Hospitalization)
  Sender: FDA-Public Use
  Company Number: KR-BRISTOL-MYERS SQUIBB COMPANY-20001814

PATIENT
  Age: 68 Year
  Sex: Male
  Weight: 63 kg

DRUGS (11)
  1. PACLITAXEL [Suspect]
     Indication: METASTATIC GASTRIC CANCER
     Dosage: LAST DOSE(134MG):27DEC13
     Route: 042
     Dates: start: 20131030
  2. MEGACE [Concomitant]
     Indication: DECREASED APPETITE
     Dosage: ONGOING
     Dates: start: 20131030
  3. RANITIDINE HCL [Concomitant]
     Indication: ABDOMINAL PAIN UPPER
     Dosage: ONGOING
     Dates: start: 20130930
  4. GANATON [Concomitant]
     Indication: DYSPEPSIA
     Dosage: ONGOING
     Dates: start: 20131030
  5. DEXAMETHASONE [Concomitant]
     Indication: CHEMOTHERAPY
     Dosage: ONGOING
     Dates: start: 20131030
  6. PHENIRAMINE [Concomitant]
     Indication: CHEMOTHERAPY
     Dosage: ONGOING
     Dates: start: 20131030
  7. ZOFRAN [Concomitant]
     Indication: NAUSEA
     Dosage: ONGOING
     Dates: start: 20131030
  8. ULCERLMIN [Concomitant]
     Indication: ABDOMINAL PAIN UPPER
     Dosage: ONGOING
     Dates: start: 20131108
  9. DIABEX XR [Concomitant]
     Indication: DIABETES MELLITUS
     Dosage: ONGOING
     Dates: start: 20130905
  10. ASPIRIN [Concomitant]
     Indication: HYPERTENSION
     Dosage: ONGOING
     Dates: start: 2005
  11. RED BLOOD CELLS [Concomitant]
     Dosage: 13-DEC-2013 TO 13-DEC-2013?03-JAN-2014 TO 03-JAN-2014.
     Dates: start: 20131213, end: 20140103

REACTIONS (1)
  - Fatigue [Recovered/Resolved]
